FAERS Safety Report 9805671 (Version 1)
Quarter: 2014Q1

REPORT INFORMATION
  Report Type: Spontaneous
  Country: FR (occurrence: FR)
  Receive Date: 20140109
  Receipt Date: 20140109
  Transmission Date: 20141002
  Serious: Yes (Hospitalization)
  Sender: FDA-Public Use
  Company Number: FR-SA-2014SA001933

PATIENT
  Sex: Male

DRUGS (15)
  1. RIFAMPICIN [Suspect]
     Indication: INFECTION
     Route: 048
     Dates: start: 20131203, end: 20131210
  2. BRISTOPEN [Concomitant]
     Indication: STAPHYLOCOCCAL INFECTION
     Route: 042
     Dates: start: 20131128, end: 20131220
  3. SEVELAMER CARBONATE [Concomitant]
     Route: 048
     Dates: start: 20131128, end: 20131221
  4. GENTAMICIN [Concomitant]
     Indication: INFECTION
     Route: 042
     Dates: start: 20131204, end: 20131210
  5. TAVANIC [Concomitant]
     Indication: INFECTION
     Route: 048
     Dates: start: 20131210, end: 20131212
  6. TRAMADOL [Concomitant]
     Route: 048
     Dates: start: 20131127, end: 20131206
  7. OXYCODONE HYDROCHLORIDE [Concomitant]
     Route: 048
     Dates: start: 20131210, end: 20131213
  8. OXYNORM [Concomitant]
     Route: 048
     Dates: start: 20131210, end: 20131212
  9. KARDEGIC [Concomitant]
     Route: 048
     Dates: start: 20131128, end: 20131212
  10. ACUPAN [Concomitant]
     Dates: start: 20131206, end: 20131209
  11. MOPRAL [Concomitant]
     Dosage: DOSE:1 UNIT(S)
     Route: 048
     Dates: start: 20131128, end: 20131203
  12. METOPROLOL TARTRATE [Concomitant]
     Route: 048
     Dates: end: 20131220
  13. CALCIDIA [Concomitant]
     Route: 048
     Dates: end: 20131220
  14. KAYEXALATE [Concomitant]
     Dosage: DOSE:1 UNIT(S)
     Route: 048
     Dates: end: 20131220
  15. STILNOX [Concomitant]
     Route: 048
     Dates: start: 20131206, end: 20131209

REACTIONS (1)
  - Cholestasis [Unknown]
